FAERS Safety Report 5213452-4 (Version None)
Quarter: 2007Q1

REPORT INFORMATION
  Report Type: 
  Country: None (occurrence: None)
  Receive Date: 20070119
  Receipt Date: 20070108
  Transmission Date: 20070707
  Serious: Yes (Other)
  Sender: FDA-Public Use
  Company Number: US-BRISTOL-MYERS SQUIBB COMPANY-13639737

PATIENT
  Age: 27 Year
  Sex: Female

DRUGS (2)
  1. METHOTREXATE [Suspect]
     Indication: ABORTION INDUCED
     Route: 048
  2. MISOPROSTOL [Concomitant]
     Indication: ABORTION INDUCED
     Route: 067

REACTIONS (3)
  - INDUCED LABOUR [None]
  - PRE-ECLAMPSIA [None]
  - PREGNANCY [None]
